FAERS Safety Report 24604521 (Version 8)
Quarter: 2025Q1

REPORT INFORMATION
  Report Type: Spontaneous
  Country: BR (occurrence: BR)
  Receive Date: 20241111
  Receipt Date: 20250223
  Transmission Date: 20250409
  Serious: Yes (Other)
  Sender: JOHNSON AND JOHNSON
  Company Number: BR-JNJFOC-20241113884

PATIENT
  Sex: Male

DRUGS (4)
  1. INFLIXIMAB [Suspect]
     Active Substance: INFLIXIMAB
     Indication: Product used for unknown indication
     Route: 041
  2. INFLIXIMAB [Suspect]
     Active Substance: INFLIXIMAB
     Indication: Product used for unknown indication
     Route: 041
  3. REMICADE [Suspect]
     Active Substance: INFLIXIMAB
     Indication: Product used for unknown indication
     Dosage: EXPIRY DATE: 31-DEC-2026
     Route: 041
     Dates: start: 2013
  4. REMICADE [Suspect]
     Active Substance: INFLIXIMAB
     Route: 041

REACTIONS (17)
  - Neoplasm malignant [Unknown]
  - Autoimmune disorder [Unknown]
  - Haematochezia [Unknown]
  - Tinnitus [Unknown]
  - Synovitis [Not Recovered/Not Resolved]
  - Adverse reaction [Unknown]
  - Skin disorder [Unknown]
  - Dysphagia [Unknown]
  - Dysarthria [Unknown]
  - Sneezing [Not Recovered/Not Resolved]
  - Headache [Unknown]
  - Chest pain [Unknown]
  - Fatigue [Not Recovered/Not Resolved]
  - Drug ineffective [Unknown]
  - Herpes virus infection [Unknown]
  - Hypersensitivity [Not Recovered/Not Resolved]
  - Dizziness [Recovered/Resolved]

NARRATIVE: CASE EVENT DATE: 20241221
